FAERS Safety Report 9295309 (Version 1)
Quarter: 2013Q1

REPORT INFORMATION
  Report Type: Spontaneous
  Country: US (occurrence: US)
  Receive Date: 20121227
  Receipt Date: 20121227
  Transmission Date: 20140127
  Serious: No
  Sender: FDA-Public Use
  Company Number: PHEH2011US011753

PATIENT
  Age: 26 Year
  Sex: Female

DRUGS (3)
  1. AFINITOR [Suspect]
     Indication: TUBEROUS SCLEROSIS
     Route: 048
     Dates: start: 20111118
  2. ZOLOFT (SERTRALINE HYDROCHLORIDE) [Concomitant]
  3. VITAMINS NOS (VITAMINS NOS) [Concomitant]

REACTIONS (5)
  - Drug level increased [None]
  - Drug level decreased [None]
  - Arthralgia [None]
  - Stress [None]
  - Ear infection [None]
